FAERS Safety Report 4876676-1 (Version None)
Quarter: 2005Q4

REPORT INFORMATION
  Report Type: 
  Country: None (occurrence: None)
  Receive Date: 20051206
  Receipt Date: 20050922
  Transmission Date: 20060501
  Serious: No
  Sender: FDA-Public Use
  Company Number: USA040978175

PATIENT
  Age: 35 Year
  Sex: Male
  Weight: 80 kg

DRUGS (4)
  1. CYMBALTA [Suspect]
     Indication: DEPRESSION
     Dosage: 60 MG DAY
     Dates: start: 20040907
  2. LUVOX [Concomitant]
  3. WELLBUTRIN [Concomitant]
  4. XANAX (ALPRAZOLAM DUM) [Concomitant]

REACTIONS (4)
  - ABDOMINAL PAIN UPPER [None]
  - ABNORMAL DREAMS [None]
  - DIZZINESS [None]
  - NAUSEA [None]
